FAERS Safety Report 25990024 (Version 1)
Quarter: 2025Q4

REPORT INFORMATION
  Report Type: Spontaneous
  Country: US (occurrence: None)
  Receive Date: 20251102
  Receipt Date: 20251102
  Transmission Date: 20260117
  Serious: No
  Sender: FDA-CTU
  Company Number: None

PATIENT
  Age: 57 Year
  Sex: Female

DRUGS (3)
  1. SEMAGLUTIDE [Suspect]
     Active Substance: SEMAGLUTIDE
     Indication: Weight decreased
  2. GLUTATHIONE [Suspect]
     Active Substance: GLUTATHIONE
  3. Semi gluten [Concomitant]

REACTIONS (1)
  - Product storage error [None]

NARRATIVE: CASE EVENT DATE: 20251021
